FAERS Safety Report 12612316 (Version 8)
Quarter: 2017Q1

REPORT INFORMATION
  Report Type: Report from Study
  Country: US (occurrence: US)
  Receive Date: 20160801
  Receipt Date: 20170116
  Transmission Date: 20170428
  Serious: No
  Sender: FDA-Public Use
  Company Number: PHEH2016US019099

PATIENT
  Age: 51 Year
  Sex: Male
  Weight: 70.3 kg

DRUGS (8)
  1. EXTAVIA [Suspect]
     Active Substance: INTERFERON BETA-1B
     Indication: MULTIPLE SCLEROSIS
     Dosage: WEEKS 1-2: 0.0625 MG (0.25 ML), QOD
     Route: 058
     Dates: start: 20160430
  2. PEPCID [Concomitant]
     Active Substance: FAMOTIDINE
     Indication: PRODUCT USED FOR UNKNOWN INDICATION
     Dosage: UNK
     Route: 065
  3. TRAMADOL. [Concomitant]
     Active Substance: TRAMADOL
     Indication: PRODUCT USED FOR UNKNOWN INDICATION
     Dosage: UNK
     Route: 065
  4. EXTAVIA [Suspect]
     Active Substance: INTERFERON BETA-1B
     Dosage: WEEKS 3-4: 0.125 MG (0.5 ML), QOD
     Route: 058
  5. EXTAVIA [Suspect]
     Active Substance: INTERFERON BETA-1B
     Dosage: WEEKS 5-6: 0.1875 MG (0.75 ML), QOD
     Route: 058
  6. EXTAVIA [Suspect]
     Active Substance: INTERFERON BETA-1B
     Dosage: WEEKS 7+: 0.25 MG (1 ML), QOD
     Route: 058
  7. TYLENOL [Concomitant]
     Active Substance: ACETAMINOPHEN
     Indication: ANTIVIRAL PROPHYLAXIS
     Dosage: UNK
     Route: 065
  8. GABAPENTIN. [Concomitant]
     Active Substance: GABAPENTIN
     Indication: PRODUCT USED FOR UNKNOWN INDICATION
     Dosage: UNK
     Route: 065

REACTIONS (10)
  - Injection site injury [Unknown]
  - Injection site pain [Recovering/Resolving]
  - Influenza like illness [Recovering/Resolving]
  - Skin sensitisation [Not Recovered/Not Resolved]
  - Injection site hypoaesthesia [Not Recovered/Not Resolved]
  - Injection site discolouration [Not Recovered/Not Resolved]
  - Weight decreased [Unknown]
  - Injection site mass [Unknown]
  - Influenza like illness [Recovered/Resolved]
  - Injection site haemorrhage [Unknown]

NARRATIVE: CASE EVENT DATE: 201610
